FAERS Safety Report 9551736 (Version 1)
Quarter: 2013Q2

REPORT INFORMATION
  Report Type: Spontaneous
  Country: US (occurrence: None)
  Receive Date: 20130627
  Receipt Date: 20130627
  Transmission Date: 20140414
  Serious: No
  Sender: FDA-Public Use
  Company Number: 1000045004

PATIENT
  Age: 88 Year
  Sex: Female

DRUGS (6)
  1. LINZESS (LINACLOTIDE) (290 MICROGRAM, CAPSULES) [Suspect]
     Indication: IRRITABLE BOWEL SYNDROME
     Dosage: 290 MCG, 1 IN1 D
     Route: 048
     Dates: start: 201303
  2. LIPITOR [Concomitant]
  3. LEXAPRO [Concomitant]
  4. LORAZEPAM [Concomitant]
  5. WARFARIN [Concomitant]
  6. VIMPAT [Concomitant]

REACTIONS (1)
  - Drug ineffective [None]
